FAERS Safety Report 16439770 (Version 1)
Quarter: 2019Q2

REPORT INFORMATION
  Report Type: Spontaneous
  Country: US (occurrence: US)
  Receive Date: 20190507
  Receipt Date: 20190507
  Transmission Date: 20190711
  Serious: Yes (Hospitalization)
  Sender: FDA-Public Use
  Company Number: None

PATIENT
  Age: 59 Year
  Sex: Male
  Weight: 67.3 kg

DRUGS (3)
  1. 5-FLUOROURACIL (5-FU) [Suspect]
     Active Substance: FLUOROURACIL
     Dates: end: 20190419
  2. LEUCOVORIN CALCIUM. [Suspect]
     Active Substance: LEUCOVORIN CALCIUM
     Dates: end: 20190417
  3. ELOXATIN [Suspect]
     Active Substance: OXALIPLATIN
     Dates: end: 20190417

REACTIONS (4)
  - Neutrophil count decreased [None]
  - Cellulitis [None]
  - Skin ulcer [None]
  - White blood cell disorder [None]

NARRATIVE: CASE EVENT DATE: 20190423
